FAERS Safety Report 8802807 (Version 1)
Quarter: 2012Q4

REPORT INFORMATION
  Report Type: 
  Country: US (occurrence: US)
  Receive Date: 20120921
  Receipt Date: 20120921
  Transmission Date: 20130627
  Serious: Yes (Other)
  Sender: FDA-Public Use
  Company Number: US-ASTRAZENECA-2012SE71703

PATIENT
  Age: 50 Year
  Sex: Female

DRUGS (3)
  1. PULMICORT RESPULES [Suspect]
     Route: 055
  2. SYMBICORT PMDI [Suspect]
     Route: 055
  3. SEROQUEL [Suspect]
     Route: 048

REACTIONS (2)
  - Accident [Unknown]
  - Off label use [Unknown]
